FAERS Safety Report 12252664 (Version 1)
Quarter: 2016Q2

REPORT INFORMATION
  Report Type: Spontaneous
  Country: US (occurrence: US)
  Receive Date: 20160411
  Receipt Date: 20160411
  Transmission Date: 20160815
  Serious: No
  Sender: FDA-Public Use
  Company Number: US-PFIZER INC-2015251823

PATIENT
  Sex: Female

DRUGS (5)
  1. IMITREX [Suspect]
     Active Substance: SUMATRIPTAN SUCCINATE
  2. KEFLEX [Suspect]
     Active Substance: CEPHALEXIN
  3. ZOMIG [Suspect]
     Active Substance: ZOLMITRIPTAN
  4. CODEINE [Suspect]
     Active Substance: CODEINE
  5. TESSALON [Suspect]
     Active Substance: BENZONATATE

REACTIONS (1)
  - Drug hypersensitivity [Unknown]
